FAERS Safety Report 25202804 (Version 3)
Quarter: 2025Q3

REPORT INFORMATION
  Report Type: Spontaneous
  Country: IN (occurrence: IN)
  Receive Date: 20250416
  Receipt Date: 20250717
  Transmission Date: 20251021
  Serious: Yes (Other)
  Sender: PFIZER
  Company Number: IN-PFIZER INC-PV202500041437

PATIENT
  Age: 65 Year
  Sex: Female
  Weight: 63 kg

DRUGS (2)
  1. LORLATINIB [Suspect]
     Active Substance: LORLATINIB
     Indication: Lung cancer metastatic
     Dosage: 100 MG, 1X/DAY
     Route: 048
     Dates: start: 202502
  2. LORLATINIB [Suspect]
     Active Substance: LORLATINIB
     Dosage: 75 MG, 1X/DAY
     Route: 048

REACTIONS (41)
  - Brain oedema [Unknown]
  - Pneumonitis [Unknown]
  - Neuropathy peripheral [Recovered/Resolved]
  - Hypertension [Unknown]
  - Heart rate increased [Unknown]
  - Body mass index increased [Unknown]
  - Pain [Unknown]
  - Asthenia [Unknown]
  - Dyspnoea exertional [Unknown]
  - Cough [Unknown]
  - Oedema peripheral [Not Recovered/Not Resolved]
  - Hypercholesterolaemia [Recovering/Resolving]
  - Hypertriglyceridaemia [Recovering/Resolving]
  - Low density lipoprotein increased [Recovering/Resolving]
  - Anaemia [Unknown]
  - Affective disorder [Unknown]
  - Cognitive disorder [Unknown]
  - Headache [Unknown]
  - Speech disorder [Unknown]
  - Visual impairment [Unknown]
  - Diarrhoea [Unknown]
  - Nausea [Unknown]
  - Constipation [Unknown]
  - Rash [Unknown]
  - Arthralgia [Unknown]
  - Myalgia [Unknown]
  - Oedema [Recovering/Resolving]
  - Fatigue [Unknown]
  - Weight increased [Unknown]
  - Lipase increased [Unknown]
  - Amylase increased [Unknown]
  - Electrocardiogram PR prolongation [Unknown]
  - Sleep disorder [Unknown]
  - Dyspnoea [Unknown]
  - Vomiting [Unknown]
  - Alanine aminotransferase increased [Unknown]
  - Aspartate aminotransferase increased [Unknown]
  - Dizziness [Unknown]
  - Hyperglycaemia [Unknown]
  - Ejection fraction decreased [Unknown]
  - Dermatitis allergic [Unknown]

NARRATIVE: CASE EVENT DATE: 20250401
